FAERS Safety Report 19163736 (Version 1)
Quarter: 2021Q2

REPORT INFORMATION
  Report Type: Spontaneous
  Country: FR (occurrence: FR)
  Receive Date: 20210421
  Receipt Date: 20210421
  Transmission Date: 20210717
  Serious: Yes (Hospitalization, Other)
  Sender: FDA-Public Use
  Company Number: NVSC2021FR086552

PATIENT
  Age: 61 Year
  Sex: Female

DRUGS (1)
  1. VALACICLOVIR SANDOZ [Suspect]
     Active Substance: VALACYCLOVIR HYDROCHLORIDE
     Indication: ORAL HERPES
     Dosage: 1 DF, QD (EVERY NIGHT)
     Route: 065
     Dates: start: 2011

REACTIONS (8)
  - Illness [Unknown]
  - Dizziness [Unknown]
  - Balance disorder [Unknown]
  - Paranoia [Unknown]
  - Loss of consciousness [Unknown]
  - Vertigo [Unknown]
  - Food aversion [Unknown]
  - Malaise [Unknown]

NARRATIVE: CASE EVENT DATE: 202010
